FAERS Safety Report 10355604 (Version 2)
Quarter: 2015Q1

REPORT INFORMATION
  Report Type: Spontaneous
  Country: GB (occurrence: GB)
  Receive Date: 20140731
  Receipt Date: 20150213
  Transmission Date: 20150720
  Serious: Yes (Other)
  Sender: FDA-Public Use
  Company Number: GB-009507513-1407GBR013123

PATIENT
  Age: 32 Year
  Sex: Female
  Weight: 109 kg

DRUGS (1)
  1. NEXPLANON [Suspect]
     Active Substance: ETONOGESTREL
     Indication: CONTRACEPTION
     Route: 059
     Dates: start: 20110706

REACTIONS (1)
  - Device breakage [Unknown]

NARRATIVE: CASE EVENT DATE: 20140710
